FAERS Safety Report 9254479 (Version 2)
Quarter: 2013Q2

REPORT INFORMATION
  Report Type: Report from Study
  Country: FR (occurrence: FR)
  Receive Date: 20130425
  Receipt Date: 20130507
  Transmission Date: 20140414
  Serious: Yes (Other)
  Sender: FDA-Public Use
  Company Number: FR-ROCHE-1216045

PATIENT
  Age: 53 Year
  Sex: Female
  Weight: 99.7 kg

DRUGS (4)
  1. BEVACIZUMAB [Suspect]
     Indication: OVARIAN CANCER
     Dosage: DATE OF LAST DOSE ADMINISTERED BEFORE SAE: 25/MAR/2013
     Route: 042
     Dates: start: 20120626, end: 20130325
  2. CARBOPLATIN [Suspect]
     Indication: OVARIAN CANCER
     Dosage: DATE OF LAST DOSE ADMINISTERED BEFORE SAE: 15/OCT/2012
     Route: 042
     Dates: start: 20120626, end: 20130325
  3. PACLITAXEL [Suspect]
     Indication: OVARIAN CANCER
     Dosage: DATE OF LAST DOSE ADMINISTERED BEFORE SAE: 15/OCT/2012
     Route: 042
     Dates: start: 20120626, end: 20130325
  4. TRAMADOL [Concomitant]
     Indication: PAIN
     Dosage: 3/DAY
     Route: 048

REACTIONS (1)
  - Bone fistula [Not Recovered/Not Resolved]
